FAERS Safety Report 8068601-X (Version None)
Quarter: 2012Q1

REPORT INFORMATION
  Report Type: 
  Country: None (occurrence: None)
  Receive Date: 20120124
  Receipt Date: 20111114
  Transmission Date: 20120608
  Serious: No
  Sender: FDA-Public Use
  Company Number: US-AMGEN-USASP2011059782

PATIENT
  Age: 64 Year
  Sex: Female

DRUGS (6)
  1. VYTORIN [Concomitant]
  2. VITAMINS                           /00067501/ [Concomitant]
  3. NEXIUM [Concomitant]
     Dosage: UNK
  4. LEXAPRO [Concomitant]
     Dosage: UNK
  5. PROLIA [Suspect]
     Indication: OSTEOPOROSIS POSTMENOPAUSAL
     Dates: end: 20111014
  6. DETROL LA [Concomitant]

REACTIONS (2)
  - OEDEMA PERIPHERAL [None]
  - BACK PAIN [None]
